FAERS Safety Report 6715318-7 (Version None)
Quarter: 2010Q2

REPORT INFORMATION
  Report Type: 
  Country: None (occurrence: None)
  Receive Date: 20100507
  Receipt Date: 20100507
  Transmission Date: 20101027
  Serious: No
  Sender: FDA-Public Use
  Company Number: None

PATIENT

DRUGS (1)
  1. CHILDREN'S ZYRTEC ALLERGY [Suspect]

REACTIONS (5)
  - ASTHMA [None]
  - CONDITION AGGRAVATED [None]
  - HYPERSENSITIVITY [None]
  - RASH [None]
  - VOMITING [None]
